FAERS Safety Report 9772788 (Version 3)
Quarter: 2014Q2

REPORT INFORMATION
  Report Type: Spontaneous
  Country: IT (occurrence: IT)
  Receive Date: 20131219
  Receipt Date: 20140528
  Transmission Date: 20141212
  Serious: Yes (Death, Other)
  Sender: FDA-Public Use
  Company Number: IT-BRISTOL-MYERS SQUIBB COMPANY-19903798

PATIENT
  Age: 88 Year
  Sex: Female

DRUGS (9)
  1. COUMADIN TABS 5 MG [Suspect]
     Indication: ATRIAL FIBRILLATION
     Dosage: 1.25 MG
     Route: 048
  2. RAMIPRIL [Concomitant]
     Dosage: TABS
     Route: 048
  3. FUROSEMIDE [Concomitant]
     Dosage: TABS
     Route: 048
  4. LANSOPRAZOLE [Concomitant]
     Route: 048
  5. NITRO [Concomitant]
     Dosage: TRANSDERMAL PATCHES?TOP
  6. CARAVEL [Concomitant]
     Dosage: TABS
     Route: 048
  7. TRIATEC [Concomitant]
     Dosage: TABS
     Route: 048
  8. LASIX [Concomitant]
     Dosage: TABS
     Route: 048
  9. CARAVEL [Concomitant]
     Dosage: TABS
     Route: 048

REACTIONS (3)
  - Septic shock [Fatal]
  - Bronchopneumonia [Fatal]
  - International normalised ratio increased [Unknown]
